FAERS Safety Report 14701881 (Version 1)
Quarter: 2018Q1

REPORT INFORMATION
  Report Type: Spontaneous
  Country: FR (occurrence: FR)
  Receive Date: 20180331
  Receipt Date: 20180331
  Transmission Date: 20180509
  Serious: Yes (Congenital Anomaly)
  Sender: FDA-Public Use
  Company Number: FR-AUROBINDO-AUR-APL-2018-017129

PATIENT
  Sex: Male
  Weight: 2.28 kg

DRUGS (6)
  1. AMOXICILLIN. [Suspect]
     Active Substance: AMOXICILLIN
     Indication: PRODUCT USED FOR UNKNOWN INDICATION
     Dosage: ()
     Route: 064
     Dates: start: 201403
  2. SPECIAFOLDINE [Suspect]
     Active Substance: FOLIC ACID
     Indication: PREGNANCY
     Dosage: 1 DOSAGE FORM
     Route: 064
     Dates: start: 20140213, end: 201405
  3. DUPHASTON [Concomitant]
     Active Substance: DYDROGESTERONE
     Indication: MENSTRUATION IRREGULAR
     Dosage: 1 DF DE J16 ? J25 (2)
     Route: 064
     Dates: start: 201402, end: 201402
  4. PIVALONE                           /00803802/ [Suspect]
     Active Substance: TIXOCORTOL PIVALATE
     Dosage: ()
     Route: 064
     Dates: start: 201403
  5. PRIMPERAN [Suspect]
     Active Substance: METOCLOPRAMIDE HYDROCHLORIDE
     Indication: VOMITING
     Dosage: 3 DOSAGE FORM
     Route: 064
     Dates: start: 20140327, end: 201406
  6. DOLIPRANE [Suspect]
     Active Substance: ACETAMINOPHEN
     Indication: PRODUCT USED FOR UNKNOWN INDICATION
     Dosage: ()
     Route: 064
     Dates: start: 201403

REACTIONS (5)
  - Hypospadias [Recovered/Resolved]
  - Micrognathia [Unknown]
  - Hypertelorism of orbit [Unknown]
  - Premature baby [Recovered/Resolved]
  - Aplasia cutis congenita [Recovered/Resolved with Sequelae]

NARRATIVE: CASE EVENT DATE: 20141009
